FAERS Safety Report 9515599 (Version 1)
Quarter: 2013Q3

REPORT INFORMATION
  Report Type: Report from Study
  Country: GR (occurrence: GR)
  Receive Date: 20130911
  Receipt Date: 20130911
  Transmission Date: 20140515
  Serious: Yes (Hospitalization, Other)
  Sender: FDA-Public Use
  Company Number: GR-ASTELLAS-2013US009380

PATIENT
  Age: 49 Year
  Sex: Female

DRUGS (10)
  1. ERLOTINIB TABLET [Suspect]
     Indication: NON-SMALL CELL LUNG CANCER STAGE IV
     Dosage: UNK
     Route: 065
     Dates: start: 201101, end: 201207
  2. ERLOTINIB TABLET [Suspect]
     Dosage: UNK
     Route: 065
     Dates: start: 2013
  3. BEVACIZUMAB [Suspect]
     Indication: NON-SMALL CELL LUNG CANCER STAGE IV
     Dosage: UNK
     Route: 042
  4. DOCETAXEL [Suspect]
     Indication: NON-SMALL CELL LUNG CANCER STAGE IV
     Dosage: UNK
     Route: 065
  5. CARBOPLATIN [Suspect]
     Indication: NON-SMALL CELL LUNG CANCER STAGE IV
     Dosage: UNK
     Route: 065
  6. ZOLEDRONIC ACID [Suspect]
     Indication: NON-SMALL CELL LUNG CANCER STAGE IV
     Dosage: UNK
     Route: 065
  7. CISPLATIN [Suspect]
     Indication: NON-SMALL CELL LUNG CANCER STAGE IV
     Dosage: UNK
     Route: 065
  8. PEMETREXED /01493902/ [Suspect]
     Indication: NON-SMALL CELL LUNG CANCER STAGE IV
     Dosage: UNK
     Route: 065
  9. VINORELBINE ACTAVIS [Suspect]
     Indication: NON-SMALL CELL LUNG CANCER STAGE IV
     Dosage: UNK
     Route: 065
  10. PACLITAXEL [Suspect]
     Indication: NON-SMALL CELL LUNG CANCER STAGE IV
     Dosage: UNK
     Route: 065

REACTIONS (8)
  - Drug effect incomplete [Unknown]
  - Haemoptysis [Unknown]
  - Pericardial effusion [Unknown]
  - Pulmonary mass [Unknown]
  - Productive cough [Unknown]
  - Metastatic neoplasm [Unknown]
  - Metastases to central nervous system [Unknown]
  - Decreased appetite [Unknown]
